FAERS Safety Report 7320723-4 (Version None)
Quarter: 2011Q1

REPORT INFORMATION
  Report Type: 
  Country: None (occurrence: None)
  Receive Date: 20110127
  Receipt Date: 20101018
  Transmission Date: 20110831
  Serious: Yes (Other)
  Sender: FDA-Public Use
  Company Number: US-1183826

PATIENT
  Sex: Female
  Weight: 47.6277 kg

DRUGS (2)
  1. MYDRIACYL [Suspect]
     Dosage: (OPHTHALMIC)
     Route: 047
     Dates: start: 20101014, end: 20101014
  2. MYDFRIN 2.5% OPHTHALMIC SOLUTION [Suspect]
     Dosage: (OPHTHALMIC)
     Route: 047
     Dates: start: 20101014, end: 20101014

REACTIONS (1)
  - HYPERSENSITIVITY [None]
